FAERS Safety Report 8173967-6 (Version None)
Quarter: 2012Q1

REPORT INFORMATION
  Report Type: 
  Country: None (occurrence: None)
  Receive Date: 20120229
  Receipt Date: 20120223
  Transmission Date: 20120608
  Serious: Yes (Hospitalization)
  Sender: FDA-Public Use
  Company Number: FR-ROCHE-1043100

PATIENT
  Sex: Male

DRUGS (7)
  1. BACTRIM [Concomitant]
     Route: 042
     Dates: start: 20120114, end: 20120115
  2. ROVAMYCINE [Suspect]
     Indication: PRODUCT USED FOR UNKNOWN INDICATION
     Route: 042
     Dates: start: 20120114
  3. MIDAZOLAM [Concomitant]
  4. FENTANYL-100 [Concomitant]
  5. PANTOPRAZOLE SODIUM [Suspect]
     Indication: PRODUCT USED FOR UNKNOWN INDICATION
     Route: 042
     Dates: start: 20120114, end: 20120120
  6. CISATRACURIUM BESYLATE [Concomitant]
  7. ROCEPHIN [Suspect]
     Indication: PRODUCT USED FOR UNKNOWN INDICATION
     Route: 042
     Dates: start: 20120114

REACTIONS (3)
  - EOSINOPHILIA [None]
  - RENAL FAILURE ACUTE [None]
  - THROMBOCYTOPENIA [None]
